FAERS Safety Report 7585903-1 (Version None)
Quarter: 2011Q3

REPORT INFORMATION
  Report Type: 
  Country: None (occurrence: None)
  Receive Date: 20110701
  Receipt Date: 20110622
  Transmission Date: 20111222
  Serious: Yes (Hospitalization)
  Sender: FDA-Public Use
  Company Number: IE-AMGEN-IRLSP2011023659

PATIENT
  Age: 46 Year
  Sex: Female

DRUGS (17)
  1. ZOLPIDEM TARTRATE [Concomitant]
  2. SEPTRA [Concomitant]
  3. EPILIM CHRONO                      /00228502/ [Concomitant]
  4. DIFLUCAN [Concomitant]
  5. ARANESP [Suspect]
     Indication: PRODUCT USED FOR UNKNOWN INDICATION
     Dosage: 150 A?G, 3 TIMES/WK
     Route: 058
  6. MOLIPAXIN [Concomitant]
  7. LEVOTHYROXINE SODIUM [Concomitant]
  8. SERTRALINE HYDROCHLORIDE [Concomitant]
  9. TRAMADOL HCL [Concomitant]
  10. PREDNISOLONE [Concomitant]
  11. LOSEPINE [Concomitant]
  12. ZOFRAN [Concomitant]
  13. NEULASTA [Suspect]
     Indication: CHEMOTHERAPY
     Dosage: 6 MG, Q3WK
     Route: 058
     Dates: start: 20110420
  14. MOTILIUM                           /00498201/ [Concomitant]
  15. VALOID                             /00014902/ [Concomitant]
  16. VALTREX [Concomitant]
  17. MOVICOL                            /01625101/ [Concomitant]

REACTIONS (3)
  - NEUTROPENIA [None]
  - ANAEMIA [None]
  - INAPPROPRIATE SCHEDULE OF DRUG ADMINISTRATION [None]
